FAERS Safety Report 5117970-9 (Version None)
Quarter: 2006Q3

REPORT INFORMATION
  Report Type: 
  Country: None (occurrence: None)
  Receive Date: 20060926
  Receipt Date: 20060915
  Transmission Date: 20061208
  Serious: Yes (Death)
  Sender: FDA-Public Use
  Company Number: 2006JP003318

PATIENT

DRUGS (3)
  1. PROGRAF [Suspect]
     Indication: STEM CELL TRANSPLANT
  2. FLUDARABINE [Concomitant]
  3. MELPHALAN [Concomitant]

REACTIONS (1)
  - SEPTIC SHOCK [None]
